FAERS Safety Report 9678659 (Version 2)
Quarter: 2013Q4

REPORT INFORMATION
  Report Type: Report from Study
  Country: JP (occurrence: JP)
  Receive Date: 20131108
  Receipt Date: 20131226
  Transmission Date: 20140711
  Serious: Yes (Hospitalization)
  Sender: FDA-Public Use
  Company Number: JP-TAKEDA-2013TJP002483

PATIENT
  Age: 59 Year
  Sex: Female
  Weight: 71 kg

DRUGS (2)
  1. PIOGLITAZONE, GLIMEPIRIDE [Suspect]
     Indication: TYPE 2 DIABETES MELLITUS
     Dosage: 1 DF, QD
     Route: 048
     Dates: start: 20120618
  2. CRESTOR [Concomitant]
     Dosage: UNK
     Route: 048

REACTIONS (1)
  - Nephrolithiasis [Recovering/Resolving]
